FAERS Safety Report 8565044-7 (Version None)
Quarter: 2012Q3

REPORT INFORMATION
  Report Type: 
  Country: None (occurrence: None)
  Receive Date: 20120803
  Receipt Date: 20120730
  Transmission Date: 20120928
  Serious: Yes (Hospitalization)
  Sender: FDA-Public Use
  Company Number: US-ROCHE-1059626

PATIENT
  Sex: Male

DRUGS (3)
  1. COPEGUS [Suspect]
     Indication: HEPATITIS C
     Route: 048
     Dates: start: 20120316
  2. LISINOPRIL [Concomitant]
  3. PEGASYS [Suspect]
     Indication: HEPATITIS C
     Route: 058
     Dates: start: 20120316

REACTIONS (17)
  - HAEMOPTYSIS [None]
  - DIARRHOEA [None]
  - HAEMOGLOBIN DECREASED [None]
  - BLOOD SODIUM DECREASED [None]
  - DIZZINESS [None]
  - DYSPNOEA [None]
  - ASTHENIA [None]
  - DECREASED APPETITE [None]
  - COUGH [None]
  - FATIGUE [None]
  - WHITE BLOOD CELL COUNT DECREASED [None]
  - SPUTUM DISCOLOURED [None]
  - ARTHRALGIA [None]
  - INFLUENZA LIKE ILLNESS [None]
  - TUBERCULOSIS [None]
  - NAUSEA [None]
  - PNEUMONIA [None]
